FAERS Safety Report 22788793 (Version 3)
Quarter: 2024Q2

REPORT INFORMATION
  Report Type: Spontaneous
  Country: US (occurrence: US)
  Receive Date: 20230804
  Receipt Date: 20240411
  Transmission Date: 20240716
  Serious: Yes (Other)
  Sender: FDA-Public Use
  Company Number: US-ELI_LILLY_AND_COMPANY-US202307018166

PATIENT
  Age: 47 Year
  Sex: Female

DRUGS (2)
  1. CYMBALTA [Suspect]
     Active Substance: DULOXETINE HYDROCHLORIDE
     Indication: Depression
     Dosage: 80 MG, DAILY
     Route: 048
     Dates: start: 2021, end: 202301
  2. CYMBALTA [Suspect]
     Active Substance: DULOXETINE HYDROCHLORIDE
     Indication: Anxiety

REACTIONS (6)
  - Dental caries [Not Recovered/Not Resolved]
  - Tooth disorder [Not Recovered/Not Resolved]
  - Toothache [Unknown]
  - Tooth loss [Unknown]
  - General physical health deterioration [Unknown]
  - Emotional disorder [Unknown]
